FAERS Safety Report 8519653-1 (Version None)
Quarter: 2012Q3

REPORT INFORMATION
  Report Type: 
  Country: None (occurrence: None)
  Receive Date: 20120719
  Receipt Date: 20120709
  Transmission Date: 20120928
  Serious: Yes (Hospitalization, Other)
  Sender: FDA-Public Use
  Company Number: DE-BRISTOL-MYERS SQUIBB COMPANY-16754749

PATIENT
  Sex: Female

DRUGS (3)
  1. CLOZAPINE [Interacting]
     Dosage: CLOZAPINE TABS DOSE WAS INCREASED FROM 50-50-50 TO 50-50-100.
  2. ABILIFY [Suspect]
     Indication: BIPOLAR DISORDER
     Dates: start: 20120403, end: 20120708
  3. LORAZEPAM [Concomitant]

REACTIONS (3)
  - DRUG INTERACTION [None]
  - DRUG LEVEL DECREASED [None]
  - PSYCHOTIC DISORDER [None]
